FAERS Safety Report 21884351 (Version 1)
Quarter: 2023Q1

REPORT INFORMATION
  Report Type: Spontaneous
  Country: IT (occurrence: IT)
  Receive Date: 20230119
  Receipt Date: 20230119
  Transmission Date: 20230418
  Serious: Yes (Life-Threatening, Hospitalization)
  Sender: FDA-Public Use
  Company Number: IT-AstraZeneca-2023A011342

PATIENT
  Sex: Male

DRUGS (1)
  1. SYNAGIS [Suspect]
     Active Substance: PALIVIZUMAB
     Indication: Prophylaxis

REACTIONS (4)
  - Respiratory failure [Unknown]
  - Bronchiolitis [Unknown]
  - H3N2 influenza [Unknown]
  - Drug ineffective [Unknown]
